FAERS Safety Report 7486840-3 (Version None)
Quarter: 2011Q2

REPORT INFORMATION
  Report Type: 
  Country: None (occurrence: None)
  Receive Date: 20110517
  Receipt Date: 20101012
  Transmission Date: 20111010
  Serious: No
  Sender: FDA-Public Use
  Company Number: US-ALLERGAN-1013137US

PATIENT
  Sex: Female

DRUGS (2)
  1. ACULAR [Suspect]
     Indication: POSTOPERATIVE CARE
     Route: 047
  2. ZYMAR [Suspect]
     Indication: POSTOPERATIVE CARE
     Route: 047

REACTIONS (3)
  - PRURITUS [None]
  - OTORRHOEA [None]
  - SWELLING FACE [None]
